FAERS Safety Report 8249747-X (Version None)
Quarter: 2012Q2

REPORT INFORMATION
  Report Type: 
  Country: None (occurrence: None)
  Receive Date: 20120402
  Receipt Date: 20120321
  Transmission Date: 20120825
  Serious: Yes (Hospitalization)
  Sender: FDA-Public Use
  Company Number: US-ELI_LILLY_AND_COMPANY-US201203006480

PATIENT
  Age: 70 Year
  Sex: Female
  Weight: 51.4 kg

DRUGS (4)
  1. BEVACIZUMAB [Suspect]
     Indication: UTERINE LEIOMYOSARCOMA
     Dosage: UNK DF, OVER 30-60 MINS ON DAY1
     Route: 042
     Dates: start: 20111220
  2. GEMCITABINE HYDROCHLORIDE [Suspect]
     Indication: UTERINE LEIOMYOSARCOMA
     Dosage: 900 MG/M2, OVER 90MIN ON DAYS 1 AND 8
     Route: 042
     Dates: start: 20111220
  3. DOCETAXEL [Suspect]
     Indication: UTERINE LEIOMYOSARCOMA
     Dosage: 75 MG/M2, OVER 60 MINS ON DAY 8
     Route: 042
     Dates: start: 20111220
  4. PEGFILGRASTIM [Suspect]
     Indication: UTERINE LEIOMYOSARCOMA
     Dosage: 150 UG/M2, ON DAYS 9-15
     Route: 058
     Dates: start: 20111220

REACTIONS (1)
  - DEHYDRATION [None]
